FAERS Safety Report 8619418-6 (Version None)
Quarter: 2012Q3

REPORT INFORMATION
  Report Type: 
  Country: None (occurrence: None)
  Receive Date: 20120824
  Receipt Date: 20120815
  Transmission Date: 20120928
  Serious: Yes (Hospitalization)
  Sender: FDA-Public Use
  Company Number: IT-PFIZER INC-2012191385

PATIENT
  Age: 32 Year
  Sex: Female

DRUGS (1)
  1. IBUPROFEN [Suspect]
     Indication: PRODUCT USED FOR UNKNOWN INDICATION
     Dosage: 4 TABLETS IN TOTAL
     Route: 048
     Dates: start: 20120707, end: 20120707

REACTIONS (1)
  - POISONING [None]
